FAERS Safety Report 6167453-2 (Version None)
Quarter: 2009Q2

REPORT INFORMATION
  Report Type: 
  Country: None (occurrence: None)
  Receive Date: 20090424
  Receipt Date: 20081024
  Transmission Date: 20091009
  Serious: Yes (Other)
  Sender: FDA-Public Use
  Company Number: JP-JNJFOC-20081006774

PATIENT
  Age: 73 Year
  Sex: Male

DRUGS (4)
  1. ITRIZOLE [Suspect]
     Indication: FUNGAL INFECTION
     Route: 048
  2. IRINOTECAN HCL [Interacting]
     Indication: ADULT T-CELL LYMPHOMA/LEUKAEMIA
     Route: 065
  3. CARBOPLATIN [Concomitant]
     Indication: ADULT T-CELL LYMPHOMA/LEUKAEMIA
     Route: 065
  4. ETOPOSIDE [Concomitant]
     Indication: ADULT T-CELL LYMPHOMA/LEUKAEMIA
     Route: 065

REACTIONS (2)
  - DIARRHOEA [None]
  - DRUG INTERACTION [None]
